FAERS Safety Report 7327035-3 (Version None)
Quarter: 2011Q1

REPORT INFORMATION
  Report Type: 
  Country: None (occurrence: None)
  Receive Date: 20110222
  Receipt Date: 20110117
  Transmission Date: 20110831
  Serious: Yes (Other)
  Sender: FDA-Public Use
  Company Number: WAES 1007USA01498

PATIENT
  Age: 39 Year
  Sex: Female

DRUGS (8)
  1. ISENTRESS [Suspect]
     Indication: ACQUIRED IMMUNODEFICIENCY SYNDROME
     Dosage: 800 MG/DAILY/PO
     Dates: end: 20100323
  2. NORVIR [Suspect]
     Indication: ACQUIRED IMMUNODEFICIENCY SYNDROME
     Dosage: 200 MG/DAILY/PO
     Route: 048
  3. COMBIVIR [Suspect]
     Indication: ACQUIRED IMMUNODEFICIENCY SYNDROME
     Dosage: 2 TAB/DAILY/PO
     Route: 048
     Dates: start: 20100514
  4. KALETRA [Suspect]
     Indication: ACQUIRED IMMUNODEFICIENCY SYNDROME
     Dosage: 4 TAB/DAILY/PO
     Route: 048
     Dates: start: 20100324, end: 20100513
  5. PREZISTA [Suspect]
     Indication: ACQUIRED IMMUNODEFICIENCY SYNDROME
     Dosage: 1200 MG/DAILY/PO. 1200 MG/DAILY
     Route: 048
     Dates: start: 20090101, end: 20091201
  6. PREZISTA [Suspect]
     Indication: ACQUIRED IMMUNODEFICIENCY SYNDROME
     Dosage: 1200 MG/DAILY/PO. 1200 MG/DAILY
     Route: 048
     Dates: start: 20100514
  7. VIREAD [Suspect]
     Indication: ACQUIRED IMMUNODEFICIENCY SYNDROME
     Dosage: 300 MG/DAILY/PO
     Route: 048
     Dates: start: 20100324, end: 20100513
  8. EMTRIVA [Suspect]
     Indication: ACQUIRED IMMUNODEFICIENCY SYNDROME
     Dosage: 200 MG/DAILY/PO
     Route: 048
     Dates: end: 20100323

REACTIONS (4)
  - STILLBIRTH [None]
  - UROSEPSIS [None]
  - HYPOTENSION [None]
  - DRUG EXPOSURE DURING PREGNANCY [None]
